FAERS Safety Report 4703858-1 (Version None)
Quarter: 2005Q2

REPORT INFORMATION
  Report Type: 
  Country: None (occurrence: None)
  Receive Date: 20050630
  Receipt Date: 20050524
  Transmission Date: 20051028
  Serious: No
  Sender: FDA-Public Use
  Company Number: US-GLAXOSMITHKLINE-A0559933A

PATIENT
  Sex: Female

DRUGS (4)
  1. FLOVENT [Suspect]
     Indication: ASTHMA
     Dosage: 1PUFF TWICE PER DAY
     Route: 055
     Dates: start: 20050507
  2. FENTANYL [Concomitant]
     Dosage: 50MCG UNKNOWN
  3. ARTHRITIS MEDICATION [Concomitant]
  4. OSTEOPOROSIS MEDICATION [Concomitant]

REACTIONS (1)
  - ARTHRALGIA [None]
